FAERS Safety Report 5326771-8 (Version None)
Quarter: 2007Q2

REPORT INFORMATION
  Report Type: 
  Country: None (occurrence: None)
  Receive Date: 20070516
  Receipt Date: 20070504
  Transmission Date: 20071010
  Serious: Yes (Other)
  Sender: FDA-Public Use
  Company Number: PFIZER INC-2007035425

PATIENT
  Age: 62 Year
  Sex: Female
  Weight: 70.3 kg

DRUGS (1)
  1. SUTENT [Suspect]
     Indication: PERITONEAL CARCINOMA
     Route: 048

REACTIONS (2)
  - ABDOMINAL DISTENSION [None]
  - FLATULENCE [None]
